FAERS Safety Report 18974361 (Version 1)
Quarter: 2021Q1

REPORT INFORMATION
  Report Type: Spontaneous
  Country: NL (occurrence: FR)
  Receive Date: 20210305
  Receipt Date: 20210305
  Transmission Date: 20210420
  Serious: Yes (Other)
  Sender: FDA-Public Use
  Company Number: FR-FRESENIUS KABI-FK202101967

PATIENT
  Age: 1 Year
  Sex: Female
  Weight: 12.5 kg

DRUGS (3)
  1. POTASSIUM CHLORIDE (MANUFACTURER UNKNOWN) [Suspect]
     Active Substance: POTASSIUM CHLORIDE
     Indication: PRODUCT USED FOR UNKNOWN INDICATION
     Dosage: 12 ML IN TOTAL
     Route: 041
     Dates: start: 20210213
  2. GLUCOSE [Suspect]
     Active Substance: DEXTROSE
     Indication: PRODUCT USED FOR UNKNOWN INDICATION
     Dosage: 500 ML IN TOTAL
     Route: 041
     Dates: start: 20210213
  3. SODIUM BICARBONATE. [Suspect]
     Active Substance: SODIUM BICARBONATE
     Indication: PRODUCT USED FOR UNKNOWN INDICATION
     Dosage: 30 ML
     Route: 041
     Dates: start: 20210213

REACTIONS (2)
  - Oedema [Recovered/Resolved]
  - Catheter site extravasation [Recovered/Resolved]

NARRATIVE: CASE EVENT DATE: 20210213
